FAERS Safety Report 25916027 (Version 1)
Quarter: 2025Q4

REPORT INFORMATION
  Report Type: Spontaneous
  Country: US (occurrence: US)
  Receive Date: 20251013
  Receipt Date: 20251013
  Transmission Date: 20260118
  Serious: No
  Sender: ELI LILLY AND COMPANY
  Company Number: US-ELI_LILLY_AND_COMPANY-US202510003640

PATIENT
  Age: 17 Year
  Sex: Male

DRUGS (1)
  1. TALTZ [Suspect]
     Active Substance: IXEKIZUMAB
     Indication: Product used for unknown indication
     Dosage: 160 MG, OTHER(LOADING DOSE)
     Route: 065
     Dates: start: 20251002

REACTIONS (3)
  - Incorrect dose administered [Unknown]
  - Injection site mass [Unknown]
  - Injection site haemorrhage [Unknown]
